FAERS Safety Report 11442990 (Version 1)
Quarter: 2015Q3

REPORT INFORMATION
  Report Type: Report from Study
  Country: DK (occurrence: IT)
  Receive Date: 20150901
  Receipt Date: 20150901
  Transmission Date: 20151125
  Serious: Yes (Other)
  Sender: FDA-Public Use
  Company Number: IT-FRI-1000079188

PATIENT
  Age: 16 Year
  Sex: Female

DRUGS (3)
  1. AIRCORT 200 MICROGRAMMI/EROGAZIONE SOSPENSIONE PRESSURIZZATA PER INAL [Concomitant]
     Indication: ASTHMA
     Route: 055
  2. MONTEGEN COMPRESSE MASTICABILI 5 MG/ MONTELUKAST [Concomitant]
     Indication: ASTHMA
     Route: 048
  3. ESCITALOPRAM [Suspect]
     Active Substance: ESCITALOPRAM OXALATE
     Indication: PRODUCT USED FOR UNKNOWN INDICATION
     Route: 048

REACTIONS (2)
  - Face oedema [Recovering/Resolving]
  - Product use issue [Unknown]

NARRATIVE: CASE EVENT DATE: 20150707
